FAERS Safety Report 9513142 (Version 2)
Quarter: 2013Q4

REPORT INFORMATION
  Report Type: Spontaneous
  Country: US (occurrence: US)
  Receive Date: 20130910
  Receipt Date: 20131018
  Transmission Date: 20140711
  Serious: No
  Sender: FDA-Public Use
  Company Number: US-PFIZER INC-2013257182

PATIENT
  Age: 65 Year
  Sex: Female

DRUGS (5)
  1. XELJANZ [Suspect]
     Indication: RHEUMATOID ARTHRITIS
     Dosage: 5 MG, 2X/DAY
     Dates: start: 20130614
  2. XELJANZ [Suspect]
     Indication: RENAL CANCER
     Dosage: 5 MG, 2X/DAY
     Route: 048
     Dates: start: 20130917
  3. COREG [Concomitant]
     Indication: HYPERTENSION
     Dosage: UNK
  4. LOSARTAN [Concomitant]
     Indication: HYPERTENSION
     Dosage: UNK
  5. PRAVASTATIN [Concomitant]
     Indication: HYPERLIPIDAEMIA
     Dosage: UNK

REACTIONS (4)
  - Heart rate increased [Not Recovered/Not Resolved]
  - Muscle disorder [Not Recovered/Not Resolved]
  - Arthralgia [Unknown]
  - Glossodynia [Unknown]
